FAERS Safety Report 26053373 (Version 1)
Quarter: 2025Q4

REPORT INFORMATION
  Report Type: Spontaneous
  Country: US (occurrence: US)
  Receive Date: 20251117
  Receipt Date: 20251117
  Transmission Date: 20260118
  Serious: Yes (Other)
  Sender: TEVA
  Company Number: US-TEVA-VS-3390847

PATIENT
  Age: 93 Year
  Sex: Male

DRUGS (1)
  1. MATZIM LA [Suspect]
     Active Substance: DILTIAZEM HYDROCHLORIDE
     Indication: Product used for unknown indication
     Route: 048

REACTIONS (2)
  - Hypotension [Unknown]
  - Intercepted product prescribing error [Unknown]
